FAERS Safety Report 9838565 (Version 1)
Quarter: 2014Q1

REPORT INFORMATION
  Report Type: Spontaneous
  Country: CH (occurrence: CH)
  Receive Date: 20140123
  Receipt Date: 20140123
  Transmission Date: 20141002
  Serious: Yes (Death)
  Sender: FDA-Public Use
  Company Number: CH-PFIZER INC-2014021301

PATIENT
  Age: 18 Year
  Sex: Male

DRUGS (6)
  1. PANTOZOL [Suspect]
     Dosage: 40 MG, 1X/DAY
     Route: 048
     Dates: start: 201310
  2. MORPHINE SULFATE [Suspect]
     Dosage: 50 MG, DAILY (30MG IN THE MORNING, 20MG IN THE EVENING)
     Route: 048
     Dates: start: 201310
  3. NEXAVAR [Suspect]
     Indication: HEPATIC CANCER
     Dosage: 200 MG, 2X/DAY
     Route: 048
     Dates: start: 20131018, end: 20131023
  4. PRIMPERAN [Suspect]
     Dosage: 10 MG, 1X/DAY
     Route: 048
     Dates: start: 201310
  5. ZOFRAN [Suspect]
     Dosage: 4 MG, 1X/DAY
     Route: 048
     Dates: start: 201310
  6. MOVICOL [Suspect]
     Dosage: 1 DF, 1X/DAY
     Route: 048
     Dates: start: 201310

REACTIONS (3)
  - Renal failure acute [Fatal]
  - Hepatocellular injury [Fatal]
  - Hepatic failure [Fatal]
